FAERS Safety Report 22247953 (Version 1)
Quarter: 2023Q2

REPORT INFORMATION
  Report Type: Spontaneous
  Country: US (occurrence: None)
  Receive Date: 20230425
  Receipt Date: 20230425
  Transmission Date: 20230721
  Serious: No
  Sender: FDA-Public Use
  Company Number: US-SUPERNUS Pharmaceuticals, Inc.-SUP202303-001026

PATIENT
  Age: 8 Year
  Sex: Male
  Weight: 21.18 kg

DRUGS (3)
  1. QELBREE [Suspect]
     Active Substance: VILOXAZINE HYDROCHLORIDE
     Indication: Attention deficit hyperactivity disorder
  2. QELBREE [Suspect]
     Active Substance: VILOXAZINE HYDROCHLORIDE
  3. QELBREE [Suspect]
     Active Substance: VILOXAZINE HYDROCHLORIDE
     Dates: start: 2022, end: 20230308

REACTIONS (3)
  - Musculoskeletal stiffness [Recovered/Resolved]
  - Vomiting [Recovered/Resolved]
  - Headache [Recovered/Resolved]

NARRATIVE: CASE EVENT DATE: 20230301
